FAERS Safety Report 23213971 (Version 1)
Quarter: 2023Q4

REPORT INFORMATION
  Report Type: Spontaneous
  Country: US (occurrence: US)
  Receive Date: 20231121
  Receipt Date: 20231121
  Transmission Date: 20240110
  Serious: Yes (Hospitalization, Other)
  Sender: FDA-Public Use
  Company Number: US-ELI_LILLY_AND_COMPANY-US202311006520

PATIENT
  Age: 61 Year
  Sex: Female

DRUGS (5)
  1. HUMALOG [Suspect]
     Active Substance: INSULIN LISPRO
     Indication: Type 2 diabetes mellitus
     Dosage: UNK UNK, PRN (SLIDING SCALE)
     Route: 058
     Dates: start: 2013
  2. HUMALOG [Suspect]
     Active Substance: INSULIN LISPRO
     Indication: Type 2 diabetes mellitus
     Dosage: UNK UNK, PRN (SLIDING SCALE)
     Route: 058
     Dates: start: 2013
  3. HUMALOG [Suspect]
     Active Substance: INSULIN LISPRO
     Dosage: UNK UNK, PRN (SLIDING SCALE)
     Route: 058
  4. HUMALOG [Suspect]
     Active Substance: INSULIN LISPRO
     Dosage: UNK UNK, PRN (SLIDING SCALE)
     Route: 058
  5. URSODIOL [Concomitant]
     Active Substance: URSODIOL
     Indication: Liver disorder

REACTIONS (10)
  - Transient ischaemic attack [Recovering/Resolving]
  - Sepsis [Recovered/Resolved]
  - Epstein-Barr virus infection [Unknown]
  - Infectious mononucleosis [Unknown]
  - Speech disorder [Recovering/Resolving]
  - Dysphonia [Recovering/Resolving]
  - Autoimmune disorder [Unknown]
  - Coordination abnormal [Recovering/Resolving]
  - Muscular weakness [Recovering/Resolving]
  - Fatigue [Unknown]

NARRATIVE: CASE EVENT DATE: 20230201
